FAERS Safety Report 4526247-1 (Version None)
Quarter: 2004Q4

REPORT INFORMATION
  Report Type: 
  Country: None (occurrence: None)
  Receive Date: 20041214
  Receipt Date: 20041122
  Transmission Date: 20050328
  Serious: Yes (Hospitalization)
  Sender: FDA-Public Use
  Company Number: AU-BRISTOL-MYERS SQUIBB COMPANY-12771911

PATIENT

DRUGS (3)
  1. TAXOL [Suspect]
     Indication: NON-SMALL CELL LUNG CANCER
  2. CARBOPLATIN [Suspect]
     Indication: NON-SMALL CELL LUNG CANCER
  3. RADIATION THERAPY [Concomitant]
     Indication: NON-SMALL CELL LUNG CANCER

REACTIONS (5)
  - DEHYDRATION [None]
  - DIARRHOEA [None]
  - HYPOVOLAEMIA [None]
  - NAUSEA [None]
  - VOMITING [None]
